FAERS Safety Report 17668848 (Version 2)
Quarter: 2020Q2

REPORT INFORMATION
  Report Type: Report from Study
  Country: US (occurrence: US)
  Receive Date: 20200415
  Receipt Date: 20200604
  Transmission Date: 20200713
  Serious: No
  Sender: FDA-Public Use
  Company Number: US-009507513-2004USA003651

PATIENT
  Age: 30 Year
  Sex: Female
  Weight: 135.17 kg

DRUGS (1)
  1. IMPLANON [Suspect]
     Active Substance: ETONOGESTREL
     Dosage: 1 EVERY 3 YEARS  (STRENGTH: 68 MG)
     Route: 059
     Dates: start: 20200410

REACTIONS (5)
  - Device deployment issue [Recovered/Resolved]
  - Device placement issue [Recovered/Resolved]
  - Device difficult to use [Recovered/Resolved]
  - No adverse event [Unknown]
  - Product quality issue [Unknown]

NARRATIVE: CASE EVENT DATE: 20200410
